FAERS Safety Report 9793166 (Version 1)
Quarter: 2014Q1

REPORT INFORMATION
  Report Type: Spontaneous
  Country: GB (occurrence: GB)
  Receive Date: 20140102
  Receipt Date: 20140102
  Transmission Date: 20141002
  Serious: Yes (Other)
  Sender: FDA-Public Use
  Company Number: GB-BRISTOL-MYERS SQUIBB COMPANY-19940659

PATIENT
  Age: 40 Year
  Sex: Male
  Weight: 124.1 kg

DRUGS (6)
  1. ARIPIPRAZOLE [Suspect]
     Dates: start: 20131206
  2. DIAZEPAM [Concomitant]
     Dates: start: 20130906, end: 20131115
  3. FLUCLOXACILLIN [Concomitant]
     Dosage: 02SEP2013:09SEP13:7D?19NOV13:26NOV13:7D
     Dates: start: 20130902, end: 20131126
  4. METHADONE [Concomitant]
     Indication: DRUG DEPENDENCE
     Dates: start: 20130906, end: 20131101
  5. QUETIAPINE [Concomitant]
     Dates: start: 20130902, end: 20131002
  6. ZOPICLONE [Concomitant]
     Dates: start: 20130821

REACTIONS (4)
  - Epistaxis [Recovered/Resolved]
  - Headache [Recovered/Resolved]
  - Paranoia [Recovered/Resolved]
  - Vomiting [Recovered/Resolved]
